FAERS Safety Report 9435733 (Version 3)
Quarter: 2013Q3

REPORT INFORMATION
  Report Type: Report from Study
  Country: AU (occurrence: AU)
  Receive Date: 20130801
  Receipt Date: 20130909
  Transmission Date: 20140515
  Serious: Yes (Life-Threatening, Hospitalization, Other)
  Sender: FDA-Public Use
  Company Number: AU-MPIJNJ-2013-05799

PATIENT
  Sex: 0

DRUGS (5)
  1. VELCADE [Suspect]
     Indication: ACUTE MYELOID LEUKAEMIA
     Dosage: 1.3 MG/M2, UNK
     Route: 040
     Dates: start: 20130710, end: 20130717
  2. CYTARABINE [Suspect]
     Indication: ACUTE MYELOID LEUKAEMIA
     Dosage: 30 MG, UNK
     Route: 037
     Dates: start: 20130710, end: 20130719
  3. CYTARABINE [Suspect]
     Dosage: 3.3 MG/KG, BID
     Route: 042
     Dates: start: 20130710, end: 20130719
  4. DAUNORUBICIN HYDROCHLORIDE [Suspect]
     Indication: ACUTE MYELOID LEUKAEMIA
     Dosage: 1.7 MG/KG, UNK
     Route: 042
     Dates: start: 20130710, end: 20130714
  5. ETOPOSIDE [Suspect]
     Indication: ACUTE MYELOID LEUKAEMIA
     Dosage: 3.3 MG/KG, UNK
     Route: 042
     Dates: start: 20130710, end: 20130714

REACTIONS (2)
  - Pneumocystis jirovecii pneumonia [Recovered/Resolved with Sequelae]
  - Hypoalbuminaemia [Unknown]
